FAERS Safety Report 19784353 (Version 1)
Quarter: 2021Q3

REPORT INFORMATION
  Report Type: Spontaneous
  Country: US (occurrence: US)
  Receive Date: 20210901
  Receipt Date: 20210901
  Transmission Date: 20211014
  Serious: Yes (Hospitalization)
  Sender: FDA-Public Use
  Company Number: None

PATIENT
  Age: 37 Year
  Sex: Male
  Weight: 135.9 kg

DRUGS (3)
  1. VINCRISTINE SULFATE. [Suspect]
     Active Substance: VINCRISTINE SULFATE
     Dates: end: 20210806
  2. METHOTREXATE. [Suspect]
     Active Substance: METHOTREXATE
     Dates: end: 20210806
  3. ONCASPAR [Suspect]
     Active Substance: PEGASPARGASE
     Dates: end: 20210728

REACTIONS (13)
  - Candida infection [None]
  - Urinary hesitation [None]
  - Mucosal inflammation [None]
  - Oral pain [None]
  - Mastication disorder [None]
  - Nausea [None]
  - Dehydration [None]
  - Stomatitis [None]
  - Vascular device infection [None]
  - Dysuria [None]
  - Febrile neutropenia [None]
  - Drug level abnormal [None]
  - Hypophagia [None]

NARRATIVE: CASE EVENT DATE: 20210813
